FAERS Safety Report 25005126 (Version 1)
Quarter: 2025Q1

REPORT INFORMATION
  Report Type: Spontaneous
  Country: RO (occurrence: RO)
  Receive Date: 20250224
  Receipt Date: 20250224
  Transmission Date: 20250409
  Serious: Yes (Other)
  Sender: PHARMAESSENTIA
  Company Number: RO-PHARMAESSENTIA CORPORATION-RO-2025-PEC-006077

PATIENT
  Age: 56 Year
  Sex: Female

DRUGS (6)
  1. BESREMI [Suspect]
     Active Substance: ROPEGINTERFERON ALFA-2B-NJFT
     Indication: Polycythaemia vera
     Dosage: 50 MICROGRAM, Q2W
     Route: 058
     Dates: start: 20240601
  2. BESREMI [Suspect]
     Active Substance: ROPEGINTERFERON ALFA-2B-NJFT
     Dosage: 450 MICROGRAM, Q2W
     Route: 058
     Dates: start: 202411
  3. BESREMI [Suspect]
     Active Substance: ROPEGINTERFERON ALFA-2B-NJFT
     Dosage: EVERY 2 WEEK(S) THE PROGRESSIVE DECREASE IN THE DOSE OF BESREMI WAS INITIATED.
     Route: 058
     Dates: start: 202412
  4. BESREMI [Suspect]
     Active Substance: ROPEGINTERFERON ALFA-2B-NJFT
     Dosage: 300 MICROGRAM, Q2W
     Route: 058
     Dates: start: 202502
  5. HYDREA [Concomitant]
     Active Substance: HYDROXYUREA
     Indication: Chemotherapy
     Route: 065
     Dates: start: 20240401, end: 20241101
  6. HYDREA [Concomitant]
     Active Substance: HYDROXYUREA
     Indication: Neoplasm malignant

REACTIONS (4)
  - Cholestasis [Recovered/Resolved]
  - Hepatic cytolysis [Recovered/Resolved]
  - Hepatomegaly [Unknown]
  - Abdominal pain upper [Recovered/Resolved]

NARRATIVE: CASE EVENT DATE: 20241101
